FAERS Safety Report 4348845-0 (Version None)
Quarter: 2004Q2

REPORT INFORMATION
  Report Type: 
  Country: None (occurrence: None)
  Receive Date: 20040423
  Receipt Date: 20040414
  Transmission Date: 20050107
  Serious: Yes (Other)
  Sender: FDA-Public Use
  Company Number: 2004015531

PATIENT
  Age: 53 Year
  Sex: Female

DRUGS (6)
  1. LIPITOR [Suspect]
     Indication: BLOOD CHOLESTEROL INCREASED
     Dosage: 10 MG (DAILY), ORAL
     Route: 048
     Dates: start: 20030725, end: 20040224
  2. TRANDOLAPRIL (TRANDOLAPRIL) [Concomitant]
  3. EFONIDIPINE (EFONIDIPINE) [Concomitant]
  4. PREDNISOLONE [Concomitant]
  5. PRAVASTATIN [Concomitant]
  6. FERROUS CITRATE [Concomitant]

REACTIONS (4)
  - APPLICATION SITE BLEEDING [None]
  - GINGIVAL BLEEDING [None]
  - HAEMOGLOBIN DECREASED [None]
  - THROMBOCYTOPENIA [None]
